FAERS Safety Report 20629530 (Version 1)
Quarter: 2022Q1

REPORT INFORMATION
  Report Type: Spontaneous
  Country: US (occurrence: US)
  Receive Date: 20220323
  Receipt Date: 20220323
  Transmission Date: 20220424
  Serious: No
  Sender: FDA-Public Use
  Company Number: US-ELI_LILLY_AND_COMPANY-US202202010433

PATIENT
  Sex: Female

DRUGS (10)
  1. INSULIN LISPRO [Suspect]
     Active Substance: INSULIN LISPRO
     Indication: Type 2 diabetes mellitus
     Dosage: UNK UNK, UNKNOWN
     Route: 065
  2. INSULIN LISPRO [Suspect]
     Active Substance: INSULIN LISPRO
     Indication: Type 2 diabetes mellitus
     Dosage: UNK UNK, UNKNOWN
     Route: 065
  3. INSULIN LISPRO [Suspect]
     Active Substance: INSULIN LISPRO
     Dosage: 22 U, EACH MORNING (AT BREAKFAST)
     Route: 058
     Dates: start: 2021
  4. INSULIN LISPRO [Suspect]
     Active Substance: INSULIN LISPRO
     Dosage: 22 U, EACH MORNING (AT BREAKFAST)
     Route: 058
     Dates: start: 2021
  5. INSULIN LISPRO [Suspect]
     Active Substance: INSULIN LISPRO
     Dosage: 18 U, OTHER (AT LUNCH)
     Route: 058
     Dates: start: 2021
  6. INSULIN LISPRO [Suspect]
     Active Substance: INSULIN LISPRO
     Dosage: 18 U, OTHER (AT LUNCH)
     Route: 058
     Dates: start: 2021
  7. INSULIN LISPRO [Suspect]
     Active Substance: INSULIN LISPRO
     Dosage: 26 U, EACH EVENING (AT DINNER)
     Route: 058
     Dates: start: 2021
  8. INSULIN LISPRO [Suspect]
     Active Substance: INSULIN LISPRO
     Dosage: 26 U, EACH EVENING (AT DINNER)
     Route: 058
     Dates: start: 2021
  9. LEVEMIR [Concomitant]
     Active Substance: INSULIN DETEMIR
     Indication: Type 2 diabetes mellitus
     Dosage: 70 U, EACH EVENING (AT BED TIME)
  10. METFORMIN [Concomitant]
     Active Substance: METFORMIN HYDROCHLORIDE
     Indication: Type 2 diabetes mellitus
     Dosage: 500 MG, DAILY

REACTIONS (2)
  - Blood glucose abnormal [Recovered/Resolved]
  - Incorrect dose administered [Unknown]
